FAERS Safety Report 5520408-0 (Version None)
Quarter: 2007Q4

REPORT INFORMATION
  Report Type: 
  Country: None (occurrence: None)
  Receive Date: 20071119
  Receipt Date: 20071106
  Transmission Date: 20080405
  Serious: Yes (Hospitalization)
  Sender: FDA-Public Use
  Company Number: FR-PFIZER INC-2007094306

PATIENT
  Sex: Female
  Weight: 79 kg

DRUGS (2)
  1. SUTENT [Suspect]
     Dosage: DAILY DOSE:50MG-FREQ:FREQUENCY: DAILY
  2. LEVOTHYROXINE SODIUM [Suspect]
     Indication: HYPOTHYROIDISM
     Dosage: DAILY DOSE:162.5MG-FREQ:FREQUENCY: DAILY

REACTIONS (1)
  - HAEMOPTYSIS [None]
